FAERS Safety Report 6237585-9 (Version None)
Quarter: 2009Q2

REPORT INFORMATION
  Report Type: 
  Country: None (occurrence: None)
  Receive Date: 20090617
  Receipt Date: 20090604
  Transmission Date: 20091009
  Serious: Yes (Hospitalization)
  Sender: FDA-Public Use
  Company Number: SPV1-2009-00620

PATIENT
  Sex: Male

DRUGS (2)
  1. ELAPRASE [Suspect]
     Indication: MUCOPOLYSACCHARIDOSIS II
     Dosage: 1X2WKS, IV DRIP
     Route: 041
     Dates: start: 20010719
  2. AMIODARONE HCL [Suspect]
     Indication: ATRIAL FIBRILLATION
     Dosage: ORAL
     Route: 048
     Dates: start: 20090301

REACTIONS (5)
  - AORTIC VALVE DISEASE [None]
  - ATRIAL FIBRILLATION [None]
  - BRONCHITIS [None]
  - PNEUMONIA [None]
  - RESPIRATORY DISORDER [None]
